FAERS Safety Report 8825870 (Version 1)
Quarter: 2012Q4

REPORT INFORMATION
  Report Type: 
  Country: JP (occurrence: JP)
  Receive Date: 20121005
  Receipt Date: 20121005
  Transmission Date: 20130627
  Serious: No
  Sender: FDA-Public Use
  Company Number: JP-ELI_LILLY_AND_COMPANY-JP201210000733

PATIENT
  Age: 55 Year

DRUGS (1)
  1. CYMBALTA [Suspect]
     Indication: DIABETIC NEUROPATHY
     Dosage: 20 mg, qd
     Route: 048
     Dates: start: 201207, end: 201208

REACTIONS (1)
  - Hepatic function abnormal [Recovered/Resolved]
